FAERS Safety Report 7496457-2 (Version None)
Quarter: 2011Q2

REPORT INFORMATION
  Report Type: 
  Country: None (occurrence: None)
  Receive Date: 20110523
  Receipt Date: 20110520
  Transmission Date: 20111010
  Serious: Yes (Death)
  Sender: FDA-Public Use
  Company Number: NL-ABBOTT-10P-114-0693496-00

PATIENT
  Sex: Male
  Weight: 85 kg

DRUGS (12)
  1. POVIDON EYE DROPS 20MG/ML TUBE 0.4 ML [Concomitant]
     Indication: DRY EYE
     Dosage: 4 TIMES DAILY; IN BOTH EYES
     Dates: start: 20070101
  2. POVIDON EYE DROPS 20MG/ML TUBE 0.4 ML [Concomitant]
     Indication: SJOGREN'S SYNDROME
  3. OMEPRAZOLE [Concomitant]
     Indication: PROPHYLAXIS AGAINST GASTROINTESTINAL ULCER
     Dosage: 1 UNIT TWICE DAILY
     Route: 048
  4. SILDENAFIL CITRATE [Concomitant]
     Indication: ERECTILE DYSFUNCTION
     Dosage: AS NEEDED
     Route: 048
     Dates: start: 20091201
  5. ACETYLCYSTEINE [Concomitant]
     Indication: PRODUCT USED FOR UNKNOWN INDICATION
     Route: 048
  6. NEBIVOLOL HCL [Concomitant]
     Indication: PRODUCT USED FOR UNKNOWN INDICATION
     Dosage: 0.5 UNITS ONCE DAILY
     Route: 048
     Dates: start: 20101110
  7. AZATHIOPRINE [Concomitant]
     Indication: RHEUMATOID ARTHRITIS
     Dosage: 3 UNITS ONCE DAILY
     Route: 048
     Dates: start: 20101210
  8. DICLOFENAC SODIUM [Concomitant]
     Indication: ARTHRALGIA
     Route: 048
  9. CALCIUM CARBONATE W/COLECALCIFEROL [Concomitant]
     Indication: OSTEOPOROSIS PROPHYLAXIS
     Dosage: 1.25 G/400 IU; 1 UNIT DAILY
     Route: 048
  10. PREDNISOLONE [Concomitant]
     Indication: RHEUMATOID ARTHRITIS
     Dosage: 1 UNIT TWICE DAILY
     Route: 048
  11. HUMIRA [Suspect]
     Indication: RHEUMATOID ARTHRITIS
     Route: 058
     Dates: start: 20101206, end: 20101206
  12. ESCITALOPRAM [Concomitant]
     Indication: DEPRESSION
     Dosage: 1 UNIT DAILY
     Route: 048
     Dates: start: 20050101

REACTIONS (4)
  - DEATH [None]
  - DYSPNOEA [None]
  - LUNG DISORDER [None]
  - PULMONARY FIBROSIS [None]
